FAERS Safety Report 6431726-6 (Version None)
Quarter: 2009Q4

REPORT INFORMATION
  Report Type: 
  Country: None (occurrence: None)
  Receive Date: 20091103
  Receipt Date: 20091019
  Transmission Date: 20100525
  Serious: Yes (Hospitalization)
  Sender: FDA-Public Use
  Company Number: 02100-JPN-07-0578

PATIENT
  Age: 79 Year
  Sex: Female
  Weight: 53.5 kg

DRUGS (14)
  1. PLETAL [Suspect]
     Indication: CEREBRAL INFARCTION
     Dosage: 81 MG, QD, ORAL
     Route: 048
     Dates: start: 20051022, end: 20070927
  2. TIMOLEATE (TIMOLOL MALEATE) EYE DROPS [Concomitant]
  3. KARY UNI (PIRENOXINE) EYE DROPS [Concomitant]
  4. LOXONIN (LOXOPROFEN SODIUM) [Concomitant]
  5. PRAVASTATIN [Concomitant]
  6. SM (TAKA-DIASTASE/NATURAL AGENTS COMBINED DRUG) [Concomitant]
  7. TOUGHMAC E (ENZYMES NOS) [Concomitant]
  8. MAGNESIUM OXIDE (MAGNESIUM OXIDE) [Concomitant]
  9. GASMOTIN (MOSAPRIDE CITRATE) [Concomitant]
  10. RESCULA (ISOPROPYL UNOPROSTONE) [Concomitant]
  11. MICARDIS [Concomitant]
  12. BENET (SODIUM RISEDRONATE HYDRATE) [Concomitant]
  13. CARVEDILOL [Concomitant]
  14. AMOBAN (ZOPICLONE) [Concomitant]

REACTIONS (2)
  - BLOOD PRESSURE INCREASED [None]
  - THALAMUS HAEMORRHAGE [None]
